FAERS Safety Report 9462614 (Version 2)
Quarter: 2013Q3

REPORT INFORMATION
  Report Type: Spontaneous
  Country: US (occurrence: US)
  Receive Date: 20130816
  Receipt Date: 20130919
  Transmission Date: 20140515
  Serious: Yes (Other)
  Sender: FDA-Public Use
  Company Number: US-AMGEN-USASP2013057178

PATIENT
  Age: 35 Year
  Sex: Female
  Weight: 58.96 kg

DRUGS (9)
  1. ENBREL [Suspect]
     Indication: RHEUMATOID ARTHRITIS
     Dosage: 50 MG, QWK
     Route: 058
     Dates: start: 20130124, end: 20130416
  2. CIMZIA [Suspect]
     Indication: RHEUMATOID ARTHRITIS
     Dosage: 200 MG, Q2WK
     Route: 058
     Dates: start: 20130416
  3. CIMZIA [Suspect]
     Indication: SPONDYLOARTHROPATHY
  4. PNEUMOCOCCAL VACCINE [Concomitant]
     Dosage: UNK
     Dates: start: 20130402
  5. PREDNISONE [Concomitant]
     Indication: AUTOIMMUNE DISORDER
     Dosage: 10 MG, QD
     Dates: start: 201211
  6. CALCIUM + VITAMIN D                /01483701/ [Concomitant]
     Indication: SUPPLEMENTATION THERAPY
     Dosage: UNK UNK, BID
     Route: 048
     Dates: start: 201211
  7. TRAMADOL [Concomitant]
     Indication: PAIN
     Dosage: 25 MG, AS NECESSARY (25-50 MG PRN)
     Route: 048
     Dates: end: 2009
  8. TRAMADOL [Concomitant]
     Dosage: 200 MG, QD
     Route: 048
     Dates: start: 2011
  9. MULTIVITAMINS, PLAIN [Concomitant]
     Indication: SUPPLEMENTATION THERAPY
     Dosage: UNK UNK, QD

REACTIONS (1)
  - Abortion spontaneous [Unknown]
